FAERS Safety Report 7265970-5 (Version None)
Quarter: 2011Q1

REPORT INFORMATION
  Report Type: 
  Country: None (occurrence: None)
  Receive Date: 20110131
  Receipt Date: 20110125
  Transmission Date: 20110831
  Serious: Yes (Life-Threatening)
  Sender: FDA-Public Use
  Company Number: PHHY2011GB05588

PATIENT
  Age: 62 Year
  Sex: Female
  Weight: 68.2 kg

DRUGS (5)
  1. CARBOPLATIN [Suspect]
     Indication: OVARIAN CANCER
     Dosage: 255 MG, UNK
     Route: 042
     Dates: start: 20101231, end: 20101231
  2. HYDROCORTISONE [Concomitant]
     Indication: ANTIINFLAMMATORY THERAPY
     Dosage: 100 MG, UNK
     Route: 042
     Dates: start: 20101231, end: 20101231
  3. RANITIDINE [Concomitant]
     Indication: ANTACID THERAPY
     Dosage: 50 MG, UNK
     Route: 042
     Dates: start: 20101231, end: 20101231
  4. ONDANSETRON [Concomitant]
     Indication: PROPHYLAXIS OF NAUSEA AND VOMITING
     Dosage: 8 MG, UNK
     Route: 042
     Dates: start: 20101231, end: 20101231
  5. PIRITON [Concomitant]
     Indication: ANTIALLERGIC THERAPY
     Dosage: 10 MG, UNK
     Route: 042
     Dates: start: 20101231, end: 20101231

REACTIONS (4)
  - DIZZINESS [None]
  - CHEST DISCOMFORT [None]
  - NAUSEA [None]
  - PARAESTHESIA [None]
